FAERS Safety Report 6306934-5 (Version None)
Quarter: 2009Q3

REPORT INFORMATION
  Report Type: 
  Country: None (occurrence: None)
  Receive Date: 20090811
  Receipt Date: 20090811
  Transmission Date: 20100115
  Serious: Yes (Death)
  Sender: FDA-Public Use
  Company Number: None

PATIENT
  Age: 34 Year
  Sex: Female

DRUGS (8)
  1. EMTRICITABINE AND TENOFOVIR DISOPROXIL FUMARATE [Suspect]
     Indication: HIV INFECTION
     Dosage: 200/300 MG QD ORAL
     Route: 048
     Dates: start: 20090612, end: 20090614
  2. EFAVIRENZ [Suspect]
     Indication: HIV INFECTION
     Dosage: 600 MG QD ORAL
     Route: 048
     Dates: start: 20090612, end: 20090614
  3. COTRIMOXAZOLE (12 DAYS DURATION) [Concomitant]
  4. PYRIDOXINE (12 DAYS DURATION) [Concomitant]
  5. RIFAMPICIN (12 DAYS DURATION) [Concomitant]
  6. ISONIAZID (12 DAYS DURATION) [Concomitant]
  7. ETHAMBUTOL (12 DAYS DURATION) [Concomitant]
  8. PYRAZINAMIDE (12 DAYS DURATION) [Concomitant]

REACTIONS (8)
  - CEREBRAL HAEMORRHAGE [None]
  - DEPRESSED LEVEL OF CONSCIOUSNESS [None]
  - HEART RATE INCREASED [None]
  - LYMPHOMA [None]
  - MENINGITIS [None]
  - MYDRIASIS [None]
  - PYREXIA [None]
  - RESTLESSNESS [None]
